FAERS Safety Report 20833120 (Version 1)
Quarter: 2022Q2

REPORT INFORMATION
  Report Type: Spontaneous
  Country: US (occurrence: None)
  Receive Date: 20220514
  Receipt Date: 20220514
  Transmission Date: 20220721
  Serious: Yes (Death, Hospitalization)
  Sender: FDA-Public Use
  Company Number: None

PATIENT
  Age: 3 Year
  Sex: Male
  Weight: 15.3 kg

DRUGS (3)
  1. CYCLOPHOSPHAMIDE [Suspect]
     Active Substance: CYCLOPHOSPHAMIDE
     Dates: end: 20220125
  2. MESNA [Suspect]
     Active Substance: MESNA
     Dates: end: 20210125
  3. THIOTEPA [Suspect]
     Active Substance: THIOTEPA
     Dates: end: 20220122

REACTIONS (12)
  - Hypertension [None]
  - Mental status changes [None]
  - Hyperbilirubinaemia [None]
  - Haematemesis [None]
  - Hypoxia [None]
  - Thrombotic microangiopathy [None]
  - Pulmonary alveolar haemorrhage [None]
  - Renal injury [None]
  - Respiratory failure [None]
  - Hypercapnia [None]
  - Traumatic lung injury [None]
  - Hypotension [None]

NARRATIVE: CASE EVENT DATE: 20220331
